FAERS Safety Report 21975101 (Version 1)
Quarter: 2023Q1

REPORT INFORMATION
  Report Type: Spontaneous
  Country: GB (occurrence: GB)
  Receive Date: 20230209
  Receipt Date: 20230209
  Transmission Date: 20230418
  Serious: Yes (Hospitalization, Other)
  Sender: FDA-Public Use
  Company Number: GB-Accord-299751

PATIENT
  Age: 25 Year
  Sex: Male

DRUGS (1)
  1. CLOZAPINE [Suspect]
     Active Substance: CLOZAPINE
     Indication: Schizophrenia
     Dosage: BY DAY 65, DOSE INCREASED TO 150 MG TWICE DAILY AND INCREASED UP TO 200 MG TWICE DAILY BY DAY 70

REACTIONS (7)
  - Social avoidant behaviour [Recovered/Resolved]
  - Weight increased [Unknown]
  - Hypertension [Unknown]
  - Tachycardia [Unknown]
  - Salivary hypersecretion [Unknown]
  - Treatment failure [Unknown]
  - Total cholesterol/HDL ratio increased [Unknown]
